FAERS Safety Report 12240752 (Version 2)
Quarter: 2016Q2

REPORT INFORMATION
  Report Type: Spontaneous
  Country: JP (occurrence: JP)
  Receive Date: 20160406
  Receipt Date: 20160419
  Transmission Date: 20160815
  Serious: Yes (Other)
  Sender: FDA-Public Use
  Company Number: JP-ROCHE-1737755

PATIENT
  Age: 2 Year
  Sex: Female
  Weight: 10 kg

DRUGS (7)
  1. TULOBUTEROL HYDROCHLORIDE [Concomitant]
     Active Substance: TULOBUTEROL HYDROCHLORIDE
     Dosage: THE FRACTIONATION DOSE FREQUENCY IS UNCERTAIN. ?DOSE INTERVAL UNCERTAINTY
     Route: 048
     Dates: start: 20160325, end: 20160330
  2. PULMICORT RESPULES [Concomitant]
     Active Substance: BUDESONIDE
     Dosage: DOSAGE IS UNCERTAIN.
     Route: 055
     Dates: start: 20160311, end: 201604
  3. PRANLUKAST [Concomitant]
     Active Substance: PRANLUKAST
     Dosage: THE FRACTIONATION DOSE FREQUENCY IS UNCERTAIN. ?DOSE INTERVAL UNCERTAINTY
     Route: 048
     Dates: start: 20160311, end: 201604
  4. TAMIFLU [Suspect]
     Active Substance: OSELTAMIVIR PHOSPHATE
     Indication: INFLUENZA
     Route: 048
     Dates: start: 20160325, end: 20160327
  5. XYZAL [Concomitant]
     Active Substance: LEVOCETIRIZINE DIHYDROCHLORIDE
     Dosage: DOSAGE IS UNCERTAIN.
     Route: 048
     Dates: start: 20160325, end: 20160330
  6. CARBOCISTEINE [Concomitant]
     Active Substance: CARBOCYSTEINE
     Dosage: DOSAGE IS UNCERTAIN.
     Route: 048
     Dates: start: 20160325, end: 20160330
  7. PULSMARIN A [Concomitant]
     Active Substance: AMBROXOL HYDROCHLORIDE
     Route: 048
     Dates: start: 20160325, end: 20160330

REACTIONS (1)
  - Abnormal behaviour [Recovered/Resolved]

NARRATIVE: CASE EVENT DATE: 20160328
